FAERS Safety Report 11656130 (Version 1)
Quarter: 2015Q4

REPORT INFORMATION
  Report Type: Spontaneous
  Country: BR (occurrence: BR)
  Receive Date: 20151023
  Receipt Date: 20151023
  Transmission Date: 20160304
  Serious: Yes (Other)
  Sender: FDA-Public Use
  Company Number: BR-TEVA-600546ISR

PATIENT
  Sex: Female

DRUGS (1)
  1. ESTREVA [Suspect]
     Active Substance: ESTRADIOL
     Route: 062

REACTIONS (4)
  - Headache [Not Recovered/Not Resolved]
  - Haematochezia [Unknown]
  - Ocular discomfort [Unknown]
  - Renal pain [Not Recovered/Not Resolved]

NARRATIVE: CASE EVENT DATE: 201510
